FAERS Safety Report 18759727 (Version 2)
Quarter: 2021Q1

REPORT INFORMATION
  Report Type: Report from Study
  Country: CN (occurrence: CN)
  Receive Date: 20210120
  Receipt Date: 20210202
  Transmission Date: 20210419
  Serious: Yes (Hospitalization)
  Sender: FDA-Public Use
  Company Number: CN-TEVA-2021-CN-1870197

PATIENT
  Age: 61 Year
  Sex: Male

DRUGS (14)
  1. RIVAROXABAN [Concomitant]
     Active Substance: RIVAROXABAN
     Indication: THROMBOSIS
     Dates: start: 20200914
  2. SULPHAMETHOXAZOLE [Concomitant]
     Active Substance: SULFAMETHOXAZOLE
     Indication: PROPHYLAXIS
     Dates: start: 20200819
  3. BENDAMUSTINE (GENERIC) [Suspect]
     Active Substance: BENDAMUSTINE
     Indication: DIFFUSE LARGE B-CELL LYMPHOMA
     Dosage: ON 02?DEC?2020 RECEIVED MOST RECENT DOSE (160.2 MG) PRIOR TO AE, TOTAL OF 6 CYCLES
     Route: 042
     Dates: start: 20200820
  4. INSULIN [Concomitant]
     Active Substance: INSULIN NOS
     Indication: DIABETES MELLITUS
     Dates: start: 201910
  5. DIPHENHYDRAMINE HYDROCHLORIDE. [Concomitant]
     Active Substance: DIPHENHYDRAMINE HYDROCHLORIDE
     Indication: PROPHYLAXIS
     Dates: start: 20201201, end: 20201201
  6. IBUPROFEN. [Concomitant]
     Active Substance: IBUPROFEN
     Indication: PROPHYLAXIS
     Dates: start: 20201201, end: 20201201
  7. SODIUM BICARBONATE. [Concomitant]
     Active Substance: SODIUM BICARBONATE
     Indication: PROPHYLAXIS
     Dates: start: 20201201, end: 20201203
  8. ALLOPURINOL. [Concomitant]
     Active Substance: ALLOPURINOL
     Indication: PROPHYLAXIS
     Dates: start: 20201201, end: 20201203
  9. RITUXIMAB. [Suspect]
     Active Substance: RITUXIMAB
     Indication: DIFFUSE LARGE B-CELL LYMPHOMA
     Dosage: ON 01?DEC?2020 RECEIVED MOST RECENT DOSE (66.8 MG) OF RITUXIMAB PRIOR TO AE, 6 CYCLES
     Route: 042
     Dates: start: 20200819
  10. PREDNISONE ACETATE [Concomitant]
     Active Substance: PREDNISONE ACETATE
     Indication: PROPHYLAXIS
     Dosage: 100 MILLIGRAM DAILY; AS REQUIRED
     Route: 048
     Dates: start: 20201201, end: 20201201
  11. GANCICLOVIR. [Concomitant]
     Active Substance: GANCICLOVIR
     Indication: PROPHYLAXIS
     Dates: start: 20200819
  12. TROPISETRON HYDROCHLORIDE [Concomitant]
     Active Substance: TROPISETRON HYDROCHLORIDE
     Indication: PROPHYLAXIS
     Dates: start: 20201201, end: 20201202
  13. REPAGLINIDE. [Concomitant]
     Active Substance: REPAGLINIDE
     Indication: DIABETES MELLITUS
     Dates: start: 201910
  14. ACARBOSE. [Concomitant]
     Active Substance: ACARBOSE
     Indication: PROPHYLAXIS
     Dates: start: 202010

REACTIONS (1)
  - Haematuria [Not Recovered/Not Resolved]

NARRATIVE: CASE EVENT DATE: 20201215
